FAERS Safety Report 8419299-X (Version None)
Quarter: 2012Q2

REPORT INFORMATION
  Report Type: 
  Country: None (occurrence: None)
  Receive Date: 20120607
  Receipt Date: 20120530
  Transmission Date: 20120825
  Serious: Yes (Other)
  Sender: FDA-Public Use
  Company Number: GB-JNJFOC-20120600881

PATIENT
  Sex: Female
  Weight: 47.62 kg

DRUGS (2)
  1. GALANTAMINE HYDROBROMIDE [Suspect]
     Indication: PRODUCT USED FOR UNKNOWN INDICATION
     Route: 048
     Dates: start: 20120530, end: 20120530
  2. GALANTAMINE HYDROBROMIDE [Suspect]
     Route: 048

REACTIONS (1)
  - ACCIDENTAL OVERDOSE [None]
